FAERS Safety Report 9207207 (Version 2)
Quarter: 2013Q2

REPORT INFORMATION
  Report Type: Spontaneous
  Country: CH (occurrence: CH)
  Receive Date: 20130403
  Receipt Date: 20130416
  Transmission Date: 20140414
  Serious: Yes (Hospitalization)
  Sender: FDA-Public Use
  Company Number: CH-PFIZER INC-2013104242

PATIENT
  Age: 75 Year
  Sex: Male
  Weight: 70.7 kg

DRUGS (6)
  1. CISPLATIN [Suspect]
     Indication: NON-SMALL CELL LUNG CANCER STAGE IIIA
     Dosage: UNK, FIRST THERAPY CYCLE: 1 SINGLE ADMINISTRATION ON THE FIRST DAY (D1) (CYCLICAL)
     Route: 041
     Dates: start: 20130125
  2. NAVELBINE [Suspect]
     Indication: NON-SMALL CELL LUNG CANCER STAGE IIIA
     Dosage: UNK, 2 ADMINISTRATIONS, 1 ON THERAPY DAY 1 (D1) AND 1 ON THERAPY DAY 8 (D8) (CYCLIC)
     Route: 041
     Dates: start: 20130125
  3. LESCOL [Concomitant]
     Dosage: 20 MG, 1X/DAY
     Route: 048
  4. EFFEXOR [Concomitant]
     Dosage: 75 MG, 1X/DAY
     Route: 048
  5. TEMESTA [Concomitant]
     Dosage: 2.5 MG, 1X/DAY
     Route: 048
  6. PANTOZOL [Concomitant]
     Dosage: 40 MG, 1X/DAY
     Route: 048

REACTIONS (2)
  - Febrile neutropenia [Recovered/Resolved]
  - Anaemia [Not Recovered/Not Resolved]
